FAERS Safety Report 23876283 (Version 3)
Quarter: 2024Q2

REPORT INFORMATION
  Report Type: Report from Study
  Country: US (occurrence: US)
  Receive Date: 20240520
  Receipt Date: 20240528
  Transmission Date: 20240716
  Serious: No
  Sender: FDA-Public Use
  Company Number: US-ABBVIE-5766173

PATIENT
  Age: 76 Year
  Sex: Female

DRUGS (2)
  1. CREON [Suspect]
     Active Substance: PANCRELIPASE AMYLASE\PANCRELIPASE LIPASE\PANCRELIPASE PROTEASE
     Indication: Pancreatitis
     Dosage: FORM STRENGTH: 24000 UNIT?FREQUENCY TEXT: 2 EVERY MEAL AND 1 EVERY SNACK
     Route: 048
     Dates: start: 2022
  2. CREON [Suspect]
     Active Substance: PANCRELIPASE AMYLASE\PANCRELIPASE LIPASE\PANCRELIPASE PROTEASE
     Indication: Pancreatitis
     Dosage: FORM STRENGTH: 6000 UNIT?FREQUENCY TEXT: 2 EVERY MEAL AND 1 EVERY SNACK
     Route: 048
     Dates: start: 201904, end: 202306

REACTIONS (3)
  - Oedema peripheral [Not Recovered/Not Resolved]
  - Product physical issue [Not Recovered/Not Resolved]
  - Adverse drug reaction [Unknown]

NARRATIVE: CASE EVENT DATE: 20240401
